FAERS Safety Report 4562412-5 (Version None)
Quarter: 2005Q1

REPORT INFORMATION
  Report Type: 
  Country: None (occurrence: None)
  Receive Date: 20050127
  Receipt Date: 20041118
  Transmission Date: 20050727
  Serious: No
  Sender: FDA-Public Use
  Company Number: US-BRISTOL-MYERS SQUIBB COMPANY-12769808

PATIENT
  Age: 55 Year
  Weight: 78 kg

DRUGS (7)
  1. KENALOG [Suspect]
     Indication: TENDONITIS
     Route: 051
     Dates: start: 20040929, end: 20040929
  2. MAGNESIUM [Concomitant]
  3. POTASSIUM [Concomitant]
  4. LIPITOR [Concomitant]
  5. TOPROL-XL [Concomitant]
  6. DIOVAN [Concomitant]
  7. NEXIUM [Concomitant]

REACTIONS (2)
  - MUSCLE SPASMS [None]
  - RASH PRURITIC [None]
